FAERS Safety Report 9627078 (Version 2)
Quarter: 2013Q4

REPORT INFORMATION
  Report Type: Report from Study
  Country: BE (occurrence: BE)
  Receive Date: 20131016
  Receipt Date: 20131021
  Transmission Date: 20140711
  Serious: Yes (Other)
  Sender: FDA-Public Use
  Company Number: BE-US-EMD SERONO, INC.-7242835

PATIENT
  Age: 34 Year
  Sex: Female

DRUGS (1)
  1. REBIF [Suspect]
     Indication: MULTIPLE SCLEROSIS
     Dates: start: 20130527

REACTIONS (5)
  - Genital prolapse [Unknown]
  - Cyst [Unknown]
  - Bladder disorder [Unknown]
  - Urinary incontinence [Unknown]
  - Influenza like illness [Unknown]
